FAERS Safety Report 8974244 (Version 1)
Quarter: 2012Q4

REPORT INFORMATION
  Report Type: Spontaneous
  Country: IT (occurrence: None)
  Receive Date: 20121212
  Receipt Date: 20121212
  Transmission Date: 20130627
  Serious: Yes (Hospitalization)
  Sender: FDA-Public Use
  Company Number: 142821

PATIENT
  Age: 67 Year
  Sex: Male

DRUGS (2)
  1. LEUCOVORIN CALCIUM [Suspect]
     Indication: HODGKIN^S DISEASE
  2. BLEOMYCIN [Suspect]
     Indication: HODGKIN^S DISEASE

REACTIONS (6)
  - Latent tuberculosis [None]
  - Carcinoid tumour pulmonary [None]
  - Malignant neoplasm progression [None]
  - Testicular disorder [None]
  - Nodule [None]
  - Stem cell transplant [None]
